FAERS Safety Report 12519854 (Version 5)
Quarter: 2016Q3

REPORT INFORMATION
  Report Type: Report from Study
  Country: JP (occurrence: JP)
  Receive Date: 20160701
  Receipt Date: 20160811
  Transmission Date: 20161109
  Serious: Yes (Hospitalization, Other)
  Sender: FDA-Public Use
  Company Number: JP-ROCHE-1437035

PATIENT
  Age: 63 Year
  Sex: Female
  Weight: 42.7 kg

DRUGS (25)
  1. LANSOPRAZOLE. [Concomitant]
     Active Substance: LANSOPRAZOLE
     Indication: PROPHYLAXIS
     Route: 048
     Dates: start: 20140723
  2. PURSENNID [Concomitant]
     Active Substance: SENNOSIDES A AND B
     Indication: CONSTIPATION
     Route: 048
     Dates: start: 20140729
  3. ATEZOLIZUMAB [Suspect]
     Active Substance: ATEZOLIZUMAB
     Indication: NON-SMALL CELL LUNG CANCER
     Dosage: MOST RECENT DOSE PRIOR TO AE ONSET 02/JUL/2014
     Route: 042
     Dates: start: 20140702
  4. TAKEPRON OD [Concomitant]
     Active Substance: LANSOPRAZOLE
     Route: 048
     Dates: start: 20140514, end: 20140630
  5. TAKEPRON OD [Concomitant]
     Active Substance: LANSOPRAZOLE
     Route: 042
     Dates: start: 20140717, end: 20140722
  6. SERENACE [Concomitant]
     Active Substance: HALOPERIDOL
     Route: 042
     Dates: start: 20140718, end: 20140718
  7. ZOSYN [Concomitant]
     Active Substance: PIPERACILLIN SODIUM\TAZOBACTAM SODIUM
     Indication: DEHYDRATION
     Route: 042
     Dates: start: 20140711, end: 20140711
  8. ZOSYN [Concomitant]
     Active Substance: PIPERACILLIN SODIUM\TAZOBACTAM SODIUM
     Indication: PYREXIA
     Route: 042
     Dates: start: 20140712, end: 20140712
  9. ZOSYN [Concomitant]
     Active Substance: PIPERACILLIN SODIUM\TAZOBACTAM SODIUM
     Indication: INFECTION
     Route: 042
     Dates: start: 20140713, end: 20140715
  10. ZOSYN [Concomitant]
     Active Substance: PIPERACILLIN SODIUM\TAZOBACTAM SODIUM
     Route: 042
     Dates: start: 20140716, end: 20140716
  11. PREDNISOLON [Concomitant]
     Active Substance: PREDNISOLONE
     Indication: PYREXIA
     Route: 048
     Dates: start: 20140714, end: 20140714
  12. DOMPERIDONE [Concomitant]
     Active Substance: DOMPERIDONE
     Indication: DECREASED APPETITE
     Route: 048
     Dates: start: 20140714, end: 20140716
  13. VITAMEDIN (JAPAN) [Concomitant]
     Dosage: 1 OTHER
     Route: 042
     Dates: start: 20140715, end: 20140730
  14. LACTEC G [Concomitant]
     Active Substance: CALCIUM CHLORIDE\POTASSIUM CHLORIDE\SODIUM CHLORIDE\SODIUM LACTATE\SORBITOL
     Route: 042
     Dates: start: 20140714, end: 20140714
  15. SODIUM CHLORIDE. [Concomitant]
     Active Substance: SODIUM CHLORIDE
     Indication: HYPONATRAEMIA
     Route: 042
     Dates: start: 20140711, end: 20140717
  16. LECICARBON (JAPAN) [Concomitant]
     Indication: CONSTIPATION
     Dosage: 1 OTHER
     Route: 061
     Dates: start: 20140730, end: 20140730
  17. LOXOPROFEN [Concomitant]
     Active Substance: LOXOPROFEN
     Route: 048
     Dates: start: 20140715, end: 20140715
  18. PEMETREXED [Concomitant]
     Active Substance: PEMETREXED
     Route: 065
     Dates: start: 20141023
  19. 20 MEQ KCL [Concomitant]
     Indication: HYPOKALAEMIA
     Dosage: 20 OTHER
     Route: 042
     Dates: start: 20140719, end: 20140730
  20. FAMOTIDINE. [Concomitant]
     Active Substance: FAMOTIDINE
     Route: 048
     Dates: start: 20140702, end: 20140716
  21. PREDNISOLON [Concomitant]
     Active Substance: PREDNISOLONE
     Route: 048
     Dates: start: 20140715, end: 20140716
  22. LOXOPROFEN [Concomitant]
     Active Substance: LOXOPROFEN
     Indication: PYREXIA
     Route: 048
     Dates: start: 20140711, end: 20140714
  23. LACTEC G [Concomitant]
     Active Substance: CALCIUM CHLORIDE\POTASSIUM CHLORIDE\SODIUM CHLORIDE\SODIUM LACTATE\SORBITOL
     Indication: DEHYDRATION
     Route: 042
     Dates: start: 20140711, end: 20140713
  24. LACTEC G [Concomitant]
     Active Substance: CALCIUM CHLORIDE\POTASSIUM CHLORIDE\SODIUM CHLORIDE\SODIUM LACTATE\SORBITOL
     Route: 042
     Dates: start: 20140716, end: 20140725
  25. BIOFERMIN R [Concomitant]
     Active Substance: BACILLUS SUBTILIS\LACTOBACILLUS ACIDOPHILUS\STREPTOCOCCUS FAECAIS
     Indication: DIARRHOEA
     Dosage: 2 TABLETS
     Route: 048
     Dates: start: 20140713, end: 20140716

REACTIONS (5)
  - Cardiac failure congestive [Recovered/Resolved]
  - Meningitis [Recovered/Resolved]
  - Alanine aminotransferase increased [Not Recovered/Not Resolved]
  - Aspartate aminotransferase increased [Recovered/Resolved]
  - Pleural effusion [Not Recovered/Not Resolved]

NARRATIVE: CASE EVENT DATE: 20140711
